FAERS Safety Report 9299301 (Version 2)
Quarter: 2013Q2

REPORT INFORMATION
  Report Type: Spontaneous
  Country: BR (occurrence: BR)
  Receive Date: 20130520
  Receipt Date: 20130619
  Transmission Date: 20140414
  Serious: Yes (Other)
  Sender: FDA-Public Use
  Company Number: PHHY2013BR049755

PATIENT
  Age: 57 Year
  Sex: Female

DRUGS (5)
  1. APRESOLIN [Suspect]
     Indication: HYPERTENSION
     Dosage: 50 MG, DAILY
     Route: 048
  2. APRESOLIN [Suspect]
     Indication: CARDIOMEGALY
  3. ATENOLOL [Concomitant]
     Indication: HYPERTENSION
     Dosage: 50 MG, DAILY
     Route: 048
  4. OLMETEC HCT [Concomitant]
     Indication: BLOOD PRESSURE INCREASED
     Dosage: 1 DF, UDAILY
     Route: 048
  5. RIVOTRIL [Concomitant]
     Indication: CARDIOMEGALY
     Dosage: 0.5 MG, DAILY
     Route: 048

REACTIONS (9)
  - Cardiomegaly [Not Recovered/Not Resolved]
  - Chest discomfort [Not Recovered/Not Resolved]
  - Syncope [Recovered/Resolved]
  - Hypotension [Recovered/Resolved]
  - Blood pressure increased [Recovered/Resolved]
  - Fatigue [Not Recovered/Not Resolved]
  - Arthralgia [Not Recovered/Not Resolved]
  - Local swelling [Recovering/Resolving]
  - Erythema [Recovering/Resolving]
